FAERS Safety Report 26130734 (Version 1)
Quarter: 2025Q4

REPORT INFORMATION
  Report Type: Spontaneous
  Country: MX (occurrence: MX)
  Receive Date: 20251208
  Receipt Date: 20251208
  Transmission Date: 20260118
  Serious: Yes (Disabling, Other)
  Sender: TERSERA THERAPEUTICS
  Company Number: MX-AstraZeneca-CH-00990949A

PATIENT

DRUGS (8)
  1. GOSERELIN [Suspect]
     Active Substance: GOSERELIN
     Indication: HER2 positive breast cancer
     Dosage: 10.8 MILLIGRAM, EVERY 3 MONTHS (PREVIOUSLY WITH MONTHLY INJECTIONS FOR APPROXIMATELY SIX MONTHS)
     Route: 058
     Dates: start: 202309, end: 202402
  2. GOSERELIN [Suspect]
     Active Substance: GOSERELIN
     Dosage: 10.8 MILLIGRAM, EVERY 3 MONTHS (PREVIOUSLY WITH MONTHLY INJECTIONS FOR APPROXIMATELY SIX MONTHS)
     Route: 058
     Dates: start: 202402
  3. ZOLADEX [Suspect]
     Active Substance: GOSERELIN ACETATE
     Indication: HER2 positive breast cancer
     Dosage: UNK
     Route: 065
  4. ANASTROZOLE [Suspect]
     Active Substance: ANASTROZOLE
     Indication: HER2 positive breast cancer
     Dosage: 1 MILLIGRAM, QD
     Route: 048
     Dates: start: 202309
  5. ERGOCALCIFEROL [Concomitant]
     Active Substance: ERGOCALCIFEROL
     Indication: Product used for unknown indication
     Dosage: UNK
     Route: 048
  6. RYBELSUS [Concomitant]
     Active Substance: SEMAGLUTIDE
     Indication: Hepatic steatosis
     Dosage: UNK
     Route: 048
     Dates: start: 202509
  7. RYBELSUS [Concomitant]
     Active Substance: SEMAGLUTIDE
     Indication: Weight
     Dosage: UNK
     Route: 065
  8. PROLIA [Concomitant]
     Active Substance: DENOSUMAB
     Indication: Osteoporosis
     Dosage: UNK
     Route: 048

REACTIONS (8)
  - Osteoporotic fracture [Unknown]
  - Osteoporosis [Recovering/Resolving]
  - Weight increased [Recovering/Resolving]
  - Abnormal behaviour [Unknown]
  - General physical condition abnormal [Unknown]
  - Weight decreased [Unknown]
  - Hepatic steatosis [Recovering/Resolving]
  - Road traffic accident [Unknown]

NARRATIVE: CASE EVENT DATE: 20230901
